FAERS Safety Report 14528319 (Version 2)
Quarter: 2018Q1

REPORT INFORMATION
  Report Type: Spontaneous
  Country: DE (occurrence: DE)
  Receive Date: 20180214
  Receipt Date: 20180307
  Transmission Date: 20180509
  Serious: Yes (Other)
  Sender: FDA-Public Use
  Company Number: DE-MALLINCKRODT-T201800557

PATIENT
  Age: 56 Year
  Sex: Female

DRUGS (2)
  1. EXALGO [Suspect]
     Active Substance: HYDROMORPHONE HYDROCHLORIDE
     Indication: SUICIDAL IDEATION
     Dosage: 96 MG, IN 1 DAY
     Route: 048
     Dates: start: 20171020
  2. VIVINOX (DIPHENHYDRAMINE\HERBALS) [Suspect]
     Active Substance: DIPHENHYDRAMINE\HERBALS
     Indication: SUICIDAL IDEATION
     Dosage: 20 DOSE(S), IN 1 DAY
     Route: 048
     Dates: start: 20171020

REACTIONS (8)
  - Pneumonia [Unknown]
  - Somnolence [Unknown]
  - Pleural effusion [Unknown]
  - Dyspnoea [Unknown]
  - Blood creatine phosphokinase increased [Unknown]
  - Chest pain [Unknown]
  - Dizziness [Unknown]
  - Intentional overdose [Unknown]

NARRATIVE: CASE EVENT DATE: 20171020
